FAERS Safety Report 5563259-3 (Version None)
Quarter: 2007Q4

REPORT INFORMATION
  Report Type: 
  Country: None (occurrence: None)
  Receive Date: 20071211
  Receipt Date: 20071126
  Transmission Date: 20080405
  Serious: Yes (Hospitalization)
  Sender: FDA-Public Use
  Company Number: 2007002299

PATIENT
  Age: 60 Year
  Sex: Female

DRUGS (1)
  1. TARCEVA [Suspect]
     Dosage: QD, ORAL
     Route: 048
     Dates: start: 20070315, end: 20070806

REACTIONS (1)
  - PORPHYRIA NON-ACUTE [None]
